FAERS Safety Report 7937906-2 (Version None)
Quarter: 2011Q4

REPORT INFORMATION
  Report Type: 
  Country: None (occurrence: None)
  Receive Date: 20111123
  Receipt Date: 20111108
  Transmission Date: 20120403
  Serious: Yes (Other)
  Sender: FDA-Public Use
  Company Number: FR-WATSON-2011-19332

PATIENT
  Age: 79 Year
  Sex: Female

DRUGS (2)
  1. TRIMETAZIDINE (UNKNOWN) [Suspect]
     Indication: PRODUCT USED FOR UNKNOWN INDICATION
     Dosage: 35 MG, BID
  2. CLONAZEPAM [Suspect]
     Indication: BALANCE DISORDER
     Dosage: UNK

REACTIONS (3)
  - DRUG INEFFECTIVE [None]
  - BALANCE DISORDER [None]
  - ORTHOSTATIC TREMOR [None]
